FAERS Safety Report 9271471 (Version 1)
Quarter: 2013Q2

REPORT INFORMATION
  Report Type: Report from Study
  Country: GB (occurrence: GB)
  Receive Date: 20130506
  Receipt Date: 20130506
  Transmission Date: 20140414
  Serious: Yes (Death, Other)
  Sender: FDA-Public Use
  Company Number: GB-JNJFOC-20130417380

PATIENT
  Age: 84 Year
  Sex: Female

DRUGS (1)
  1. REMICADE [Suspect]
     Indication: RHEUMATOID ARTHRITIS
     Route: 042
     Dates: start: 20040213

REACTIONS (4)
  - Cardiomyopathy [Fatal]
  - Myocardial fibrosis [Fatal]
  - Hypertensive nephropathy [Unknown]
  - Pulmonary infarction [Unknown]
